FAERS Safety Report 9921440 (Version 3)
Quarter: 2015Q1

REPORT INFORMATION
  Report Type: Spontaneous
  Country: JP (occurrence: JP)
  Receive Date: 20140225
  Receipt Date: 20150212
  Transmission Date: 20150721
  Serious: Yes (Hospitalization)
  Sender: FDA-Public Use
  Company Number: JP-GE HEALTHCARE MEDICAL DIAGNOSTICS-OMPQ-PR-1402S-0173

PATIENT
  Age: 63 Year
  Sex: Female
  Weight: 46 kg

DRUGS (5)
  1. OMNIPAQUE [Suspect]
     Active Substance: IOHEXOL
     Indication: DIAGNOSTIC PROCEDURE
  2. OMNIPAQUE [Suspect]
     Active Substance: IOHEXOL
     Indication: PRODUCT USED FOR UNKNOWN INDICATION
     Route: 042
     Dates: start: 20140110, end: 20140110
  3. JANUVIA [Concomitant]
     Active Substance: SITAGLIPTIN PHOSPHATE
  4. ENALAPRIL [Concomitant]
     Active Substance: ENALAPRIL
  5. HOCHUEKKITO [Concomitant]
     Active Substance: HERBALS

REACTIONS (5)
  - Infusion site swelling [Recovered/Resolved]
  - Drug hypersensitivity [Recovering/Resolving]
  - Diapedesis [Unknown]
  - Erythema [Unknown]
  - Extravasation [Unknown]

NARRATIVE: CASE EVENT DATE: 201401
